FAERS Safety Report 5207858-7 (Version None)
Quarter: 2007Q1

REPORT INFORMATION
  Report Type: 
  Country: None (occurrence: None)
  Receive Date: 20070112
  Receipt Date: 20070104
  Transmission Date: 20070707
  Serious: Yes (Other)
  Sender: FDA-Public Use
  Company Number: US-PFIZER INC-2007002148

PATIENT
  Sex: Female

DRUGS (1)
  1. BEXTRA [Suspect]
     Indication: PAIN MANAGEMENT
     Route: 048

REACTIONS (3)
  - MULTIPLE INJURIES [None]
  - SKIN GRAFT [None]
  - WOUND INFECTION [None]
